FAERS Safety Report 5744225-1 (Version None)
Quarter: 2008Q2

REPORT INFORMATION
  Report Type: 
  Country: None (occurrence: None)
  Receive Date: 20080516
  Receipt Date: 20080516
  Transmission Date: 20081010
  Serious: Yes (Life-Threatening, Hospitalization, Other)
  Sender: FDA-Public Use
  Company Number: None

PATIENT
  Age: 63 Year
  Sex: Female
  Weight: 81.6475 kg

DRUGS (1)
  1. LEVAQUIN [Suspect]
     Indication: ANTIBIOTIC THERAPY
     Dosage: ONE DAILY
     Dates: start: 20080509, end: 20080510

REACTIONS (3)
  - HYPERTENSION [None]
  - NAUSEA [None]
  - VENTRICULAR EXTRASYSTOLES [None]
